FAERS Safety Report 4715619-8 (Version None)
Quarter: 2005Q3

REPORT INFORMATION
  Report Type: 
  Country: None (occurrence: None)
  Receive Date: 20050713
  Receipt Date: 20050702
  Transmission Date: 20060218
  Serious: Yes (Life-Threatening, Hospitalization)
  Sender: FDA-Public Use
  Company Number: MYVW-NO-0507S-0033

PATIENT
  Age: 55 Year
  Sex: Female
  Weight: 56 kg

DRUGS (3)
  1. MYOVIEW (TECHNETIUM TC99M TETROFOSMIN) [Suspect]
     Indication: CARDIAC STRESS TEST
     Dosage: 296 MGQ, SINGLE DOSE, I.V.
     Route: 042
     Dates: start: 20050616, end: 20050616
  2. TECHNETIUM (TC99M) GENERATOR (MANF. UNKNOWN) [Concomitant]
  3. INDAPAMIDE [Concomitant]

REACTIONS (7)
  - BLOOD PRESSURE INCREASED [None]
  - CHILLS [None]
  - DRY MOUTH [None]
  - DYSPNOEA [None]
  - MUSCLE SPASMS [None]
  - MYALGIA [None]
  - PYREXIA [None]
